FAERS Safety Report 4994984-0 (Version None)
Quarter: 2006Q2

REPORT INFORMATION
  Report Type: 
  Country: None (occurrence: None)
  Receive Date: 20060503
  Receipt Date: 20060419
  Transmission Date: 20061013
  Serious: Yes (Hospitalization, Other)
  Sender: FDA-Public Use
  Company Number: 6018244

PATIENT
  Age: 43 Year
  Sex: Female

DRUGS (12)
  1. SOPROL(TABLET) (BISOPROLOL FUMARATE) [Suspect]
     Indication: ESSENTIAL HYPERTENSION
     Dosage: SEE IMAGE
     Dates: start: 20050916, end: 20050923
  2. SOPROL(TABLET) (BISOPROLOL FUMARATE) [Suspect]
     Indication: ESSENTIAL HYPERTENSION
     Dosage: SEE IMAGE
     Dates: start: 20050916, end: 20050923
  3. PANTOPRAZOLE SODIUM [Suspect]
     Dosage: 40 MG (40 MG, 1 IN 1 D) ORAL
     Route: 048
     Dates: start: 20050915, end: 20050918
  4. OFLOXACIN [Suspect]
     Indication: PYELONEPHRITIS
     Dosage: SEE IMAGE
     Route: 048
     Dates: start: 20050811, end: 20050821
  5. OFLOXACIN [Suspect]
     Indication: PYELONEPHRITIS
     Dosage: SEE IMAGE
     Route: 048
     Dates: start: 20050916, end: 20050917
  6. PERFALGAN (PARACETAMOL) [Suspect]
     Dosage: 1 GM (1 GM, 1 IN 1 D) INTRAVENOUS
     Route: 042
     Dates: start: 20050916, end: 20050101
  7. KETOPROFEN [Suspect]
     Dosage: 200 MG (100 MG, 2 IN 1 D) INTRAVENOUS
     Route: 042
     Dates: start: 20050915, end: 20050918
  8. SPASFON (PHLOROGLUCINOL, TRIMETHYLPHLOROGLUCINOL) [Suspect]
     Dosage: 2 DOSAGE FORMS (2 DOSAGE FORMS, 1 IN 1 D) INTRAVENOUS
     Route: 042
     Dates: start: 20050915, end: 20050918
  9. CILEST (ETHINYLESTRADIOL, NORGESTIMATE) [Concomitant]
  10. ACETAMINOPHEN [Concomitant]
  11. OMEPRAZOLE [Concomitant]
  12. IMOVANE (ZOPICLONE) [Concomitant]

REACTIONS (7)
  - ABDOMINAL PAIN UPPER [None]
  - CHOLELITHIASIS [None]
  - EPSTEIN-BARR VIRUS INFECTION [None]
  - HAEMATURIA [None]
  - HAEMOGLOBIN DECREASED [None]
  - HYPERTENSION [None]
  - THROMBOCYTOPENIA [None]
